FAERS Safety Report 13616831 (Version 1)
Quarter: 2017Q2

REPORT INFORMATION
  Report Type: Spontaneous
  Country: US (occurrence: US)
  Receive Date: 20170606
  Receipt Date: 20170606
  Transmission Date: 20170830
  Serious: Yes (Other)
  Sender: FDA-Public Use
  Company Number: US-SA-2016SA167569

PATIENT
  Age: 69 Year
  Sex: Male
  Weight: 95.25 kg

DRUGS (1)
  1. LANTUS [Suspect]
     Active Substance: INSULIN GLARGINE
     Indication: DIABETES MELLITUS
     Dosage: DOSE:56 UNIT(S)
     Route: 065

REACTIONS (1)
  - Diabetes mellitus [Unknown]
